FAERS Safety Report 21152612 (Version 1)
Quarter: 2022Q3

REPORT INFORMATION
  Report Type: Spontaneous
  Country: US (occurrence: US)
  Receive Date: 20220730
  Receipt Date: 20220730
  Transmission Date: 20221026
  Serious: Yes (Death, Life-Threatening, Hospitalization, Other)
  Sender: FDA-Public Use
  Company Number: US-SA-2022SA295248

PATIENT
  Age: 60 Year
  Sex: Male
  Weight: 53.3 kg

DRUGS (8)
  1. DOCETAXEL [Suspect]
     Active Substance: DOCETAXEL
     Indication: Neoplasm
     Dosage: 75 MG/M2, Q3W
     Route: 042
     Dates: start: 20220321
  2. MIRZOTAMAB CLEZUTOCLAX [Suspect]
     Active Substance: MIRZOTAMAB CLEZUTOCLAX
     Indication: Neoplasm
     Dosage: 16 MG/M2, Q3W
     Route: 042
     Dates: start: 20220321
  3. PEGFILGRASTIM CBQV [Concomitant]
     Indication: Hypothyroidism
     Dosage: UNK
     Route: 048
  4. PEGFILGRASTIM CBQV [Concomitant]
     Indication: Infection prophylaxis
     Dosage: 30 ML, Q3W
     Route: 058
     Dates: start: 20220323
  5. PEGFILGRASTIM CBQV [Concomitant]
     Dosage: 112 UG, QD
     Dates: start: 20190424
  6. GABAPENTIN [Concomitant]
     Active Substance: GABAPENTIN
     Indication: Neuropathy peripheral
     Dosage: 100 MG, QD
     Route: 048
     Dates: start: 20220323
  7. ONDANSETRON [Concomitant]
     Active Substance: ONDANSETRON
     Indication: Nausea
     Dosage: 8 MG, PRN
     Route: 048
     Dates: start: 20220322
  8. MUCINEX [Concomitant]
     Active Substance: GUAIFENESIN
     Indication: Hypersensitivity
     Dosage: 600 MG, BID
     Route: 048
     Dates: start: 20220404

REACTIONS (2)
  - Pneumonitis [Fatal]
  - Embolism [Not Recovered/Not Resolved]

NARRATIVE: CASE EVENT DATE: 20220424
